FAERS Safety Report 5479738-3 (Version None)
Quarter: 2007Q4

REPORT INFORMATION
  Report Type: 
  Country: None (occurrence: None)
  Receive Date: 20071008
  Receipt Date: 20070927
  Transmission Date: 20080405
  Serious: Yes (Other)
  Sender: FDA-Public Use
  Company Number: JP-SANOFI-SYNTHELABO-A01200710868

PATIENT
  Age: 81 Year
  Sex: Male

DRUGS (3)
  1. GOSERELIN ACETATE [Suspect]
     Route: 058
  2. LEUPROLIDE ACETATE [Suspect]
     Indication: PROSTATE CANCER
     Route: 058
  3. LEUPROLIDE ACETATE [Suspect]
     Route: 058

REACTIONS (1)
  - INJECTION SITE NODULE [None]
